FAERS Safety Report 14417258 (Version 1)
Quarter: 2018Q1

REPORT INFORMATION
  Report Type: Spontaneous
  Country: US (occurrence: US)
  Receive Date: 20180119
  Receipt Date: 20180119
  Transmission Date: 20180509
  Serious: Yes (Hospitalization)
  Sender: FDA-Public Use
  Company Number: None

PATIENT
  Age: 53 Year
  Sex: Male
  Weight: 109.54 kg

DRUGS (1)
  1. BUPRENORPHINE/NALOXONE [Suspect]
     Active Substance: BUPRENORPHINE\NALOXONE
     Indication: DRUG DEPENDENCE
     Dosage: 4/1 MG BID PO
     Route: 048
     Dates: start: 20171108, end: 20171111

REACTIONS (7)
  - Mental status changes [None]
  - Vomiting [None]
  - Disorientation [None]
  - Confusional state [None]
  - Hyperhidrosis [None]
  - Memory impairment [None]
  - Dysphemia [None]

NARRATIVE: CASE EVENT DATE: 20171111
